FAERS Safety Report 9270645 (Version 1)
Quarter: 2013Q2

REPORT INFORMATION
  Report Type: Spontaneous
  Country: US (occurrence: US)
  Receive Date: 20130505
  Receipt Date: 20130505
  Transmission Date: 20140414
  Serious: Yes (Hospitalization)
  Sender: FDA-Public Use
  Company Number: PHHY2013US042553

PATIENT
  Age: 4 Year
  Sex: Female

DRUGS (3)
  1. PREDNISOLONE [Suspect]
     Indication: IMMUNOSUPPRESSION
  2. TACROLIMUS [Concomitant]
     Indication: IMMUNOSUPPRESSION
  3. SIROLIMUS [Concomitant]
     Indication: IMMUNOSUPPRESSION

REACTIONS (11)
  - Intussusception [Recovered/Resolved]
  - Haematochezia [Recovered/Resolved]
  - Abdominal pain [Recovered/Resolved]
  - Vomiting [Recovered/Resolved]
  - Tachycardia [Unknown]
  - Oedema mucosal [Recovered/Resolved]
  - Pneumatosis intestinalis [Unknown]
  - Lymphadenopathy [Unknown]
  - Gastrointestinal necrosis [Recovered/Resolved]
  - Hypertension [Unknown]
  - Mucosal haemorrhage [Recovered/Resolved]
